FAERS Safety Report 10220574 (Version 1)
Quarter: 2014Q2

REPORT INFORMATION
  Report Type: Spontaneous
  Country: US (occurrence: None)
  Receive Date: 20140605
  Receipt Date: 20140605
  Transmission Date: 20141212
  Serious: Yes (Other)
  Sender: FDA-Public Use
  Company Number: None

PATIENT
  Age: 77 Year
  Sex: Male
  Weight: 86.18 kg

DRUGS (8)
  1. LEVAQUIN [Suspect]
     Indication: COUGH
     Route: 048
     Dates: start: 20140515, end: 20140517
  2. SYNTHROID [Concomitant]
  3. IBUPROFEN [Concomitant]
  4. ONE A DAY MULTI [Concomitant]
  5. FISH OIL [Concomitant]
  6. VIT D [Suspect]
  7. VIT C [Suspect]
  8. PROBIOTIC [Concomitant]

REACTIONS (4)
  - Pain in extremity [None]
  - Swelling [None]
  - Groin pain [None]
  - Musculoskeletal chest pain [None]
